FAERS Safety Report 7398122-9 (Version None)
Quarter: 2011Q2

REPORT INFORMATION
  Report Type: 
  Country: None (occurrence: None)
  Receive Date: 20110406
  Receipt Date: 20110404
  Transmission Date: 20111010
  Serious: Yes (Death, Other)
  Sender: FDA-Public Use
  Company Number: MA-ROCHE-768926

PATIENT

DRUGS (2)
  1. CAPECITABINE [Suspect]
     Indication: CERVIX CARCINOMA
     Dosage: FOR 14 DAYS FOLLOWED BY 7 DAY REST PERIOD
     Route: 048
  2. CISPLATIN [Suspect]
     Indication: CERVIX CARCINOMA
     Dosage: ON DAY 1
     Route: 042

REACTIONS (10)
  - ANAEMIA [None]
  - NEUTROPENIA [None]
  - SEPSIS [None]
  - NEPHROPATHY TOXIC [None]
  - FEBRILE NEUTROPENIA [None]
  - DIARRHOEA [None]
  - PALMAR-PLANTAR ERYTHRODYSAESTHESIA SYNDROME [None]
  - FATIGUE [None]
  - NAUSEA [None]
  - VOMITING [None]
